FAERS Safety Report 6379236-9 (Version None)
Quarter: 2009Q3

REPORT INFORMATION
  Report Type: 
  Country: None (occurrence: None)
  Receive Date: 20090923
  Receipt Date: 20090923
  Transmission Date: 20100115
  Serious: Yes (Hospitalization, Other)
  Sender: FDA-Public Use
  Company Number: None

PATIENT
  Age: 59 Year
  Sex: Male
  Weight: 108.9 kg

DRUGS (11)
  1. GENTAMICIN [Suspect]
     Indication: BACTERAEMIA
     Dosage: 90-120MG IV Q8HOURS
     Route: 042
  2. GENTAMICIN [Suspect]
     Indication: STAPHYLOCOCCAL INFECTION
     Dosage: 90-120MG IV Q8HOURS
     Route: 042
  3. MORPHINE [Concomitant]
  4. GABAPENTIN [Concomitant]
  5. INSULIN ASPART [Concomitant]
  6. POLYETHYLENE GLYCOL [Concomitant]
  7. SENNA [Concomitant]
  8. DOCUSATE [Concomitant]
  9. DIAZEPAM [Concomitant]
  10. VANCOMYCIN [Concomitant]
  11. APAP TAB [Concomitant]

REACTIONS (3)
  - BLOOD CREATININE INCREASED [None]
  - NEPHROPATHY TOXIC [None]
  - RENAL TUBULAR NECROSIS [None]
